FAERS Safety Report 6677628-1 (Version None)
Quarter: 2010Q2

REPORT INFORMATION
  Report Type: 
  Country: None (occurrence: None)
  Receive Date: 20100412
  Receipt Date: 20100317
  Transmission Date: 20101027
  Serious: No
  Sender: FDA-Public Use
  Company Number: US-ALEXION-A201000318

PATIENT
  Sex: Female

DRUGS (6)
  1. SOLIRIS [Suspect]
     Indication: PAROXYSMAL NOCTURNAL HAEMOGLOBINURIA
     Dosage: 600 MG, QW
     Route: 042
     Dates: start: 20071009, end: 20071030
  2. SOLIRIS [Suspect]
     Dosage: 900 MG, Q14D
     Route: 042
     Dates: start: 20071106
  3. ATIVAN [Concomitant]
     Dosage: 1 MG, QD
     Route: 048
  4. NEXIUM [Concomitant]
     Dosage: 40 MG, QD
     Route: 048
  5. PRENATAL VITAMINS                  /01549301/ [Concomitant]
     Dosage: UNK
     Route: 048
  6. BENADRYL [Concomitant]
     Dosage: 25 MG, QD
     Route: 048

REACTIONS (5)
  - GINGIVAL BLEEDING [None]
  - GINGIVAL INJURY [None]
  - GINGIVAL SWELLING [None]
  - GINGIVITIS [None]
  - PYREXIA [None]
